FAERS Safety Report 10283779 (Version 2)
Quarter: 2014Q3

REPORT INFORMATION
  Report Type: Spontaneous
  Country: US (occurrence: US)
  Receive Date: 20140708
  Receipt Date: 20140728
  Transmission Date: 20150326
  Serious: No
  Sender: FDA-Public Use
  Company Number: US-009507513-1407USA000248

PATIENT
  Age: 58 Year
  Sex: Male
  Weight: 117.1 kg

DRUGS (1)
  1. JANUMET [Suspect]
     Active Substance: METFORMIN HYDROCHLORIDE\SITAGLIPTIN PHOSPHATE
     Indication: TYPE 2 DIABETES MELLITUS
     Dosage: 50/1000 1 DF(TABLET) TWICE PER DAY
     Route: 048
     Dates: start: 201406, end: 201406

REACTIONS (3)
  - Drug intolerance [Recovered/Resolved]
  - Nausea [Recovered/Resolved]
  - Malaise [Recovered/Resolved]

NARRATIVE: CASE EVENT DATE: 201406
